FAERS Safety Report 9702037 (Version 1)
Quarter: 2013Q4

REPORT INFORMATION
  Report Type: Spontaneous
  Country: US (occurrence: None)
  Receive Date: 20131120
  Receipt Date: 20131120
  Transmission Date: 20140711
  Serious: No
  Sender: FDA-Public Use
  Company Number: None

PATIENT
  Age: 25 None
  Sex: Female
  Weight: 90.72 kg

DRUGS (6)
  1. IMPLANON [Suspect]
     Dates: start: 20110516, end: 20131108
  2. METRONIDAZOLE [Concomitant]
  3. IBUPROFEN [Concomitant]
  4. HYDROCODON [Concomitant]
  5. ACETAMINOPHEN [Concomitant]
  6. CYCLOBENZAPRINE [Concomitant]

REACTIONS (2)
  - Contusion [None]
  - Pruritus [None]
